FAERS Safety Report 9374507 (Version 1)
Quarter: 2013Q2

REPORT INFORMATION
  Report Type: Spontaneous
  Country: CA (occurrence: None)
  Receive Date: 20130624
  Receipt Date: 20130624
  Transmission Date: 20140414
  Serious: Yes (Other)
  Sender: FDA-Public Use
  Company Number: CA-010235

PATIENT
  Age: 89 Year
  Sex: Male

DRUGS (1)
  1. DEGARELIX (FIRMAGON) 80 MG [Suspect]
     Indication: PROSTATE CANCER
     Route: 058
     Dates: start: 20120627

REACTIONS (4)
  - Arthritis infective [None]
  - Thrombosis [None]
  - Abdominal pain [None]
  - Injection site pain [None]
